FAERS Safety Report 17614252 (Version 1)
Quarter: 2020Q2

REPORT INFORMATION
  Report Type: Spontaneous
  Country: US (occurrence: US)
  Receive Date: 20200402
  Receipt Date: 20200402
  Transmission Date: 20200713
  Serious: No
  Sender: FDA-Public Use
  Company Number: US-JNJFOC-20200310881

PATIENT
  Sex: Female

DRUGS (1)
  1. WOMENS ROGAINE [Suspect]
     Active Substance: MINOXIDIL
     Indication: ALOPECIA
     Dosage: HALF THE DOSE AND IT WAS STILL TOO MUCH FOR ME TWICE DAILY
     Route: 061
     Dates: start: 202003, end: 20200304

REACTIONS (4)
  - Dizziness [Not Recovered/Not Resolved]
  - Heart rate irregular [Not Recovered/Not Resolved]
  - Underdose [Unknown]
  - Malaise [Not Recovered/Not Resolved]
